FAERS Safety Report 4732891-9 (Version None)
Quarter: 2005Q3

REPORT INFORMATION
  Report Type: 
  Country: None (occurrence: None)
  Receive Date: 20050803
  Receipt Date: 20050429
  Transmission Date: 20060218
  Serious: No
  Sender: FDA-Public Use
  Company Number: US-GLAXOSMITHKLINE-A0556318A

PATIENT
  Age: 79 Year
  Sex: Male

DRUGS (6)
  1. AVANDAMET [Suspect]
     Route: 048
     Dates: start: 20041101, end: 20050428
  2. GLUCOPHAGE [Suspect]
     Route: 048
  3. NORVASC [Concomitant]
  4. ACCUPRIL [Concomitant]
  5. PRAVACHOL [Concomitant]
  6. CARDURA [Concomitant]

REACTIONS (1)
  - DIARRHOEA [None]
